FAERS Safety Report 4558381-4 (Version None)
Quarter: 2005Q1

REPORT INFORMATION
  Report Type: 
  Country: None (occurrence: None)
  Receive Date: 20050103
  Receipt Date: 20041006
  Transmission Date: 20050727
  Serious: Yes (Other)
  Sender: FDA-Public Use
  Company Number: 2004UW20851

PATIENT
  Age: 71 Year
  Sex: Male
  Weight: 113.39 kg

DRUGS (3)
  1. CRESTOR [Suspect]
     Indication: BLOOD CHOLESTEROL INCREASED
     Dosage: 5 MG PO
     Route: 048
     Dates: start: 20041002, end: 20041001
  2. THYROID MEDICINE [Concomitant]
  3. BLOOD PRESSURE MEDICINE [Concomitant]

REACTIONS (3)
  - DISORIENTATION [None]
  - FEELING ABNORMAL [None]
  - MEMORY IMPAIRMENT [None]
